FAERS Safety Report 6955745-6 (Version None)
Quarter: 2010Q3

REPORT INFORMATION
  Report Type: 
  Country: None (occurrence: None)
  Receive Date: 20100830
  Receipt Date: 20100715
  Transmission Date: 20110219
  Serious: No
  Sender: FDA-Public Use
  Company Number: US-AMGEN-KDL424593

PATIENT
  Sex: Male
  Weight: 81.3 kg

DRUGS (8)
  1. NPLATE [Suspect]
     Indication: IDIOPATHIC THROMBOCYTOPENIC PURPURA
     Dates: start: 20100505
  2. DAPSONE [Concomitant]
  3. FOLIC ACID [Concomitant]
  4. ICAPS [Concomitant]
  5. OMEPRAZOLE [Concomitant]
  6. SIMVASTATIN [Concomitant]
  7. TRAMADOL HCL [Concomitant]
  8. VITAMIN D [Concomitant]

REACTIONS (2)
  - ALOPECIA [None]
  - HYPOAESTHESIA [None]
